FAERS Safety Report 17500443 (Version 1)
Quarter: 2020Q1

REPORT INFORMATION
  Report Type: Spontaneous
  Country: JP (occurrence: JP)
  Receive Date: 20200305
  Receipt Date: 20200305
  Transmission Date: 20200409
  Serious: Yes (Death)
  Sender: FDA-Public Use
  Company Number: NVSJ2020JP003034

PATIENT
  Age: 64 Year
  Sex: Male

DRUGS (8)
  1. DABRAFENIB [Suspect]
     Active Substance: DABRAFENIB
     Indication: METASTASES TO LUNG
  2. DABRAFENIB [Suspect]
     Active Substance: DABRAFENIB
     Indication: METASTASES TO LIVER
  3. TRAMETINIB [Suspect]
     Active Substance: TRAMETINIB
     Indication: METASTASES TO CENTRAL NERVOUS SYSTEM
  4. DABRAFENIB [Suspect]
     Active Substance: DABRAFENIB
     Indication: METASTASES TO CENTRAL NERVOUS SYSTEM
  5. TRAMETINIB [Suspect]
     Active Substance: TRAMETINIB
     Indication: MALIGNANT MELANOMA
     Dosage: UNK
     Route: 048
  6. TRAMETINIB [Suspect]
     Active Substance: TRAMETINIB
     Indication: METASTASES TO LUNG
  7. TRAMETINIB [Suspect]
     Active Substance: TRAMETINIB
     Indication: METASTASES TO LIVER
  8. DABRAFENIB [Suspect]
     Active Substance: DABRAFENIB
     Indication: MALIGNANT MELANOMA
     Dosage: UNK
     Route: 048

REACTIONS (1)
  - Death [Fatal]
